FAERS Safety Report 16460808 (Version 1)
Quarter: 2019Q2

REPORT INFORMATION
  Report Type: Report from Study
  Country: US (occurrence: US)
  Receive Date: 20190621
  Receipt Date: 20190621
  Transmission Date: 20190711
  Serious: Yes (Hospitalization)
  Sender: FDA-Public Use
  Company Number: US-SUN PHARMACEUTICAL INDUSTRIES LTD-2019R1-210836

PATIENT
  Age: 64 Year
  Sex: Male
  Weight: 69 kg

DRUGS (12)
  1. HALDOL [Concomitant]
     Active Substance: HALOPERIDOL
     Indication: PRODUCT USED FOR UNKNOWN INDICATION
     Dosage: UNK
     Route: 065
  2. LENVIMA [Suspect]
     Active Substance: LENVATINIB
     Indication: HEPATOCELLULAR CARCINOMA
     Dosage: 12 MILLIGRAM, QD
     Route: 048
     Dates: start: 201904, end: 2019
  3. TRAMADOL HCL-APAP [Concomitant]
     Indication: PRODUCT USED FOR UNKNOWN INDICATION
     Dosage: UNK
     Route: 065
  4. ZOFRAN [Concomitant]
     Active Substance: ONDANSETRON HYDROCHLORIDE
     Indication: PRODUCT USED FOR UNKNOWN INDICATION
     Dosage: UNK
     Route: 065
  5. SENNA-EXTRA [Concomitant]
     Indication: PRODUCT USED FOR UNKNOWN INDICATION
     Dosage: UNK
     Route: 065
  6. LEXAPRO [Concomitant]
     Active Substance: ESCITALOPRAM OXALATE
     Indication: PRODUCT USED FOR UNKNOWN INDICATION
     Dosage: UNK
     Route: 065
  7. LENVIMA [Suspect]
     Active Substance: LENVATINIB
     Dosage: 12 MILLIGRAM, DAILY
     Route: 048
     Dates: start: 201905
  8. OXYCODONE [Suspect]
     Active Substance: OXYCODONE
     Indication: PRODUCT USED FOR UNKNOWN INDICATION
     Dosage: UNK
     Route: 065
  9. FAMOTIDINE. [Concomitant]
     Active Substance: FAMOTIDINE
     Indication: PRODUCT USED FOR UNKNOWN INDICATION
     Dosage: UNK
     Route: 065
  10. RIFAXIMIN. [Concomitant]
     Active Substance: RIFAXIMIN
     Indication: PRODUCT USED FOR UNKNOWN INDICATION
     Dosage: UNK
     Route: 065
  11. FUROSEMIDE. [Concomitant]
     Active Substance: FUROSEMIDE
     Indication: PRODUCT USED FOR UNKNOWN INDICATION
     Dosage: UNK
     Route: 065
  12. SPIRONOLACTONE W/HYDROCHLOROTHIAZIDE [Concomitant]
     Active Substance: HYDROCHLOROTHIAZIDE\SPIRONOLACTONE
     Indication: PRODUCT USED FOR UNKNOWN INDICATION
     Dosage: UNK
     Route: 065

REACTIONS (21)
  - Headache [Unknown]
  - Haematochezia [Unknown]
  - Abdominal pain [Unknown]
  - Disorientation [Unknown]
  - Feeling abnormal [Unknown]
  - Anger [Unknown]
  - Chromaturia [Unknown]
  - Weight decreased [Unknown]
  - Hepatic encephalopathy [Unknown]
  - Fatigue [Unknown]
  - Vein disorder [Unknown]
  - Asthenia [Unknown]
  - Ammonia increased [Unknown]
  - Stomatitis [Unknown]
  - Suicidal ideation [Unknown]
  - Decreased appetite [Unknown]
  - Candida infection [Unknown]
  - Confusional state [Unknown]
  - Incontinence [Unknown]
  - Diarrhoea [Unknown]
  - Oropharyngeal pain [Unknown]

NARRATIVE: CASE EVENT DATE: 2019
